FAERS Safety Report 12975437 (Version 1)
Quarter: 2016Q4

REPORT INFORMATION
  Report Type: Spontaneous
  Country: US (occurrence: US)
  Receive Date: 20161122
  Receipt Date: 20161122
  Transmission Date: 20170207
  Serious: Yes (Hospitalization)
  Sender: FDA-Public Use
  Company Number: None

PATIENT
  Age: 18 Year
  Sex: Male
  Weight: 157.9 kg

DRUGS (6)
  1. ETOPOSIDE (VP-16) [Suspect]
     Active Substance: ETOPOSIDE
     Dates: end: 20050602
  2. PREDNISONE. [Suspect]
     Active Substance: PREDNISONE
     Dates: end: 20050606
  3. BLEOMYCIN [Suspect]
     Active Substance: BLEOMYCIN SULFATE
     Dates: end: 20050607
  4. DOXORUBICIN HYDROCHLORIDE. [Suspect]
     Active Substance: DOXORUBICIN HYDROCHLORIDE
     Dates: end: 20050601
  5. VINCRISTINE SULFATE. [Suspect]
     Active Substance: VINCRISTINE SULFATE
     Dates: end: 20050607
  6. CYCLOPHOSPHAMIDE. [Suspect]
     Active Substance: CYCLOPHOSPHAMIDE
     Dates: end: 20050531

REACTIONS (1)
  - Papillary thyroid cancer [None]

NARRATIVE: CASE EVENT DATE: 20161014
